FAERS Safety Report 21223653 (Version 1)
Quarter: 2022Q3

REPORT INFORMATION
  Report Type: Spontaneous
  Country: US (occurrence: None)
  Receive Date: 20220817
  Receipt Date: 20220817
  Transmission Date: 20221027
  Serious: Yes (Other)
  Sender: FDA-Public Use
  Company Number: None

PATIENT
  Age: 25 Year
  Sex: Male

DRUGS (1)
  1. MAVYRET [Suspect]
     Active Substance: GLECAPREVIR\PIBRENTASVIR
     Dosage: FREQUENCY : DAILY;?
     Route: 048
     Dates: start: 202207

REACTIONS (3)
  - SARS-CoV-2 test positive [None]
  - Therapy interrupted [None]
  - Hyperhidrosis [None]

NARRATIVE: CASE EVENT DATE: 20220815
